FAERS Safety Report 10482698 (Version 1)
Quarter: 2014Q3

REPORT INFORMATION
  Report Type: Spontaneous
  Country: US (occurrence: US)
  Receive Date: 20140929
  Receipt Date: 20140929
  Transmission Date: 20150326
  Serious: Yes (Hospitalization)
  Sender: FDA-Public Use
  Company Number: US-009507513-1409USA011002

PATIENT
  Age: 49 Year
  Sex: Female
  Weight: 110 kg

DRUGS (13)
  1. LISINOPRIL. [Suspect]
     Active Substance: LISINOPRIL
     Dosage: 20 MG DAILY
     Dates: start: 201401, end: 201403
  2. LISINOPRIL. [Suspect]
     Active Substance: LISINOPRIL
     Dosage: 30 MG DAILY
     Dates: start: 201403, end: 201409
  3. ASPIRIN. [Suspect]
     Active Substance: ASPIRIN
     Indication: CARDIAC DISORDER
     Dosage: 81 MG, QD
  4. MIRALAX [Suspect]
     Active Substance: POLYETHYLENE GLYCOL 3350
     Indication: PRODUCT USED FOR UNKNOWN INDICATION
     Dosage: UNK, UNKNOWN
     Route: 048
  5. AMBIEN [Suspect]
     Active Substance: ZOLPIDEM TARTRATE
     Indication: SLEEP DISORDER THERAPY
     Dosage: 10 MG, HS
  6. EFFEXOR [Suspect]
     Active Substance: VENLAFAXINE HYDROCHLORIDE
     Indication: DEPRESSION
     Dosage: 150 MG TWO TIMES A DAY
     Route: 048
     Dates: start: 2012
  7. EFFEXOR [Suspect]
     Active Substance: VENLAFAXINE HYDROCHLORIDE
     Dosage: 150 MG DAILY
     Dates: start: 2012
  8. LISINOPRIL. [Suspect]
     Active Substance: LISINOPRIL
     Indication: HYPERTENSION
     Dosage: 10 MG DAILY
     Dates: start: 201308, end: 201401
  9. LISINOPRIL. [Suspect]
     Active Substance: LISINOPRIL
     Dosage: 40 MG DAILY
     Dates: start: 201409
  10. PRILOSEC [Suspect]
     Active Substance: OMEPRAZOLE MAGNESIUM
     Indication: DYSPEPSIA
     Dosage: UNK, UNKNOWN
     Dates: start: 201407, end: 2014
  11. XANAX [Suspect]
     Active Substance: ALPRAZOLAM
     Indication: ANXIETY
     Dosage: 1 MG, BID
  12. LEVEMIR [Suspect]
     Active Substance: INSULIN DETEMIR
     Indication: DIABETES MELLITUS
     Dosage: 100 IU, HS
  13. CRESTOR [Suspect]
     Active Substance: ROSUVASTATIN CALCIUM
     Indication: BLOOD CHOLESTEROL INCREASED
     Dosage: 10 MG DAILY

REACTIONS (19)
  - Mitral valve prolapse [Not Recovered/Not Resolved]
  - Dry mouth [Not Recovered/Not Resolved]
  - Faeces pale [Unknown]
  - Initial insomnia [Not Recovered/Not Resolved]
  - Flatulence [Unknown]
  - Memory impairment [Not Recovered/Not Resolved]
  - Chromaturia [Unknown]
  - Muscle tightness [Unknown]
  - Abdominal pain upper [Unknown]
  - Night sweats [Not Recovered/Not Resolved]
  - Paraesthesia [Unknown]
  - Dizziness [Unknown]
  - Chest pain [Unknown]
  - Feeling abnormal [Unknown]
  - Fatigue [Unknown]
  - Dyspepsia [Unknown]
  - Headache [Not Recovered/Not Resolved]
  - Crying [Unknown]
  - Drug ineffective [Unknown]

NARRATIVE: CASE EVENT DATE: 201307
